FAERS Safety Report 10748495 (Version 1)
Quarter: 2015Q1

REPORT INFORMATION
  Report Type: Spontaneous
  Country: US (occurrence: None)
  Receive Date: 20150120
  Receipt Date: 20150120
  Transmission Date: 20150721
  Serious: No
  Sender: FDA-Public Use
  Company Number: AEGR000979

PATIENT
  Age: 71 Year
  Sex: Male
  Weight: 77.1 kg

DRUGS (8)
  1. METOPROLOL [Concomitant]
     Active Substance: METOPROLOL
  2. FUROSEMDIE [Concomitant]
  3. OMEPRAZOLE. [Concomitant]
     Active Substance: OMEPRAZOLE
  4. THEOPHYLLINE [Concomitant]
     Active Substance: THEOPHYLLINE ANHYDROUS
  5. INSULIN [Concomitant]
     Active Substance: INSULIN NOS
  6. PLAVIX (CLOPIDOGREL BISULFATE) [Concomitant]
  7. LOSARTAN [Concomitant]
     Active Substance: LOSARTAN
  8. JUXTAPID [Suspect]
     Active Substance: LOMITAPIDE MESYLATE
     Indication: BLOOD CHOLESTEROL INCREASED
     Route: 048
     Dates: start: 201405

REACTIONS (4)
  - Muscular weakness [None]
  - Limb discomfort [None]
  - Off label use [None]
  - Neck pain [None]

NARRATIVE: CASE EVENT DATE: 201405
